FAERS Safety Report 24357932 (Version 1)
Quarter: 2024Q3

REPORT INFORMATION
  Report Type: Spontaneous
  Country: GB (occurrence: GB)
  Receive Date: 20240924
  Receipt Date: 20240924
  Transmission Date: 20241016
  Serious: Yes (Other)
  Sender: IPSEN
  Company Number: None

PATIENT
  Age: 77 Year
  Sex: Female

DRUGS (1)
  1. DYSPORT [Suspect]
     Active Substance: ABOBOTULINUMTOXINA
     Indication: Muscle spasticity
     Dosage: A FEW INJECTIONS IN THE AFFECTED ARM
     Route: 065
     Dates: start: 20240522, end: 20240522

REACTIONS (11)
  - Rash erythematous [Not Recovered/Not Resolved]
  - Arthralgia [Unknown]
  - Myalgia [Unknown]
  - Oral pain [Unknown]
  - Rash [Unknown]
  - Fatigue [Unknown]
  - Eyelid ptosis [Unknown]
  - Vision blurred [Unknown]
  - Dysgeusia [Unknown]
  - Malaise [Unknown]
  - Gingival blister [Unknown]

NARRATIVE: CASE EVENT DATE: 20240603
